FAERS Safety Report 17847829 (Version 37)
Quarter: 2025Q2

REPORT INFORMATION
  Report Type: Report from Study
  Country: US (occurrence: US)
  Receive Date: 20200601
  Receipt Date: 20250428
  Transmission Date: 20250717
  Serious: Yes (Other)
  Sender: TAKEDA
  Company Number: US-SHIRE-US202017940

PATIENT
  Age: 77 Year
  Sex: Female
  Weight: 121 kg

DRUGS (39)
  1. HUMAN IMMUNOGLOBULIN G [Suspect]
     Active Substance: HUMAN IMMUNOGLOBULIN G
     Indication: Immunodeficiency common variable
     Dosage: 34 GRAM, Q2WEEKS
     Dates: start: 20190708
  2. HUMAN IMMUNOGLOBULIN G [Suspect]
     Active Substance: HUMAN IMMUNOGLOBULIN G
     Dosage: 38 GRAM, Q2WEEKS
     Dates: start: 20190710
  3. LIDOCAINE [Suspect]
     Active Substance: LIDOCAINE
     Indication: Product used for unknown indication
  4. ACETAMINOPHEN [Concomitant]
     Active Substance: ACETAMINOPHEN
  5. DIPHENHYDRAMINE HYDROCHLORIDE [Concomitant]
     Active Substance: DIPHENHYDRAMINE HYDROCHLORIDE
  6. FIBER THERAPY (CALCIUM POLYCARBOPHIL) [Concomitant]
     Active Substance: CALCIUM POLYCARBOPHIL
  7. NORVASC [Concomitant]
     Active Substance: AMLODIPINE BESYLATE
  8. ATROVENT HFA [Concomitant]
     Active Substance: IPRATROPIUM BROMIDE
  9. POTASSIUM [Concomitant]
     Active Substance: POTASSIUM
  10. ADVIL [Concomitant]
     Active Substance: IBUPROFEN
  11. EPINEPHRINE [Concomitant]
     Active Substance: EPINEPHRINE
     Indication: Product used for unknown indication
  12. SULINDAC [Concomitant]
     Active Substance: SULINDAC
  13. ZYRTEC [Concomitant]
     Active Substance: CETIRIZINE HYDROCHLORIDE
  14. DIOVAN [Concomitant]
     Active Substance: VALSARTAN
  15. VITAMIN D3 [Concomitant]
     Active Substance: CHOLECALCIFEROL
  16. VITAMIN E [Concomitant]
     Active Substance: .ALPHA.-TOCOPHEROL
  17. ASPIRIN [Concomitant]
     Active Substance: ASPIRIN
  18. METFORMIN HYDROCHLORIDE [Concomitant]
     Active Substance: METFORMIN HYDROCHLORIDE
  19. SINGULAIR [Concomitant]
     Active Substance: MONTELUKAST SODIUM
  20. LOPRESSOR [Concomitant]
     Active Substance: METOPROLOL TARTRATE
  21. CRESTOR [Concomitant]
     Active Substance: ROSUVASTATIN CALCIUM
  22. MUPIROCIN [Concomitant]
     Active Substance: MUPIROCIN
  23. NYSTATIN AND TRIAMCINOLONE [Concomitant]
     Active Substance: NYSTATIN\TRIAMCINOLONE ACETONIDE
  24. ALEVE [Concomitant]
     Active Substance: NAPROXEN SODIUM
     Indication: Product used for unknown indication
  25. STOOL SOFTENER (DOCUSATE) [Concomitant]
     Active Substance: DOCUSATE
  26. CALCIUM [Concomitant]
     Active Substance: CALCIUM
     Indication: Product used for unknown indication
  27. B12 [Concomitant]
     Indication: Product used for unknown indication
  28. IRON [Concomitant]
     Active Substance: IRON
     Indication: Product used for unknown indication
  29. GLUCOSAMINE [Concomitant]
     Active Substance: GLUCOSAMINE
     Indication: Product used for unknown indication
  30. IMMUNE SUPPORT [Concomitant]
     Indication: Product used for unknown indication
  31. BENICAR [Concomitant]
     Active Substance: OLMESARTAN MEDOXOMIL
     Indication: Product used for unknown indication
  32. METRONIDAZOLE [Concomitant]
     Active Substance: METRONIDAZOLE
     Indication: Product used for unknown indication
  33. NITROFURANTOIN [Concomitant]
     Active Substance: NITROFURANTOIN
     Indication: Urinary tract infection
  34. TRIAMCINOLONE [Concomitant]
     Active Substance: TRIAMCINOLONE
  35. ASPIRIN [Concomitant]
     Active Substance: ASPIRIN
  36. VITAMIN B [Concomitant]
     Active Substance: VITAMIN B
  37. FLUOROURACIL [Concomitant]
     Active Substance: FLUOROURACIL
  38. PROAIR HFA [Concomitant]
     Active Substance: ALBUTEROL SULFATE
  39. WELLBUTRIN XL [Concomitant]
     Active Substance: BUPROPION HYDROCHLORIDE

REACTIONS (36)
  - Bladder cancer [Recovered/Resolved]
  - Retinal detachment [Unknown]
  - Macular degeneration [Unknown]
  - Deafness [Unknown]
  - Tumour haemorrhage [Unknown]
  - Diabetes mellitus [Unknown]
  - Abdominal pain upper [Unknown]
  - Sinusitis [Unknown]
  - Oxygen saturation abnormal [Unknown]
  - Smoke sensitivity [Unknown]
  - Sneezing [Unknown]
  - Cystitis [Recovered/Resolved]
  - Urinary tract infection [Unknown]
  - Weight decreased [Unknown]
  - Seasonal allergy [Unknown]
  - Infection [Unknown]
  - Neoplasm [Unknown]
  - Carpal tunnel syndrome [Unknown]
  - Multiple allergies [Unknown]
  - Weight increased [Unknown]
  - Fall [Unknown]
  - Upper respiratory tract infection [Unknown]
  - Asthma [Unknown]
  - Infusion site discharge [Unknown]
  - Inappropriate schedule of product administration [Unknown]
  - Arthritis [Unknown]
  - Infusion site haemorrhage [Unknown]
  - Malaise [Unknown]
  - Cough [Unknown]
  - Infusion site bruising [Unknown]
  - Dizziness [Unknown]
  - Infusion site swelling [Unknown]
  - Infusion site pain [Unknown]
  - Headache [Unknown]
  - Pruritus [Unknown]
  - Hypoaesthesia [Unknown]

NARRATIVE: CASE EVENT DATE: 20200801
